FAERS Safety Report 16627277 (Version 1)
Quarter: 2019Q3

REPORT INFORMATION
  Report Type: Spontaneous
  Country: DE (occurrence: DE)
  Receive Date: 20190724
  Receipt Date: 20190724
  Transmission Date: 20191004
  Serious: Yes (Hospitalization)
  Sender: FDA-Public Use
  Company Number: DE-TEVA-2019-DE-1081168

PATIENT
  Age: 8 Year
  Sex: Female
  Weight: 34 kg

DRUGS (3)
  1. MOVICOL JUNIR AROMAFREI [Concomitant]
     Indication: CONSTIPATION
     Dosage: 4 DOSAGE FORMS DAILY; DAILY DOSE: 2 DOSAGE FORM EVERY DAYS 2 SEPARATED DOSES
     Route: 048
     Dates: start: 20190222
  2. TOPIRAMAT [Suspect]
     Active Substance: TOPIRAMATE
     Indication: EPILEPSY
     Dosage: 87.5MG -0-100 MG
     Route: 048
     Dates: start: 20190131, end: 20190502
  3. OXCARBAZEPIN [Concomitant]
     Active Substance: OXCARBAZEPINE
     Indication: EPILEPSY
     Dosage: 1800 MILLIGRAM DAILY; DAILY DOSE: 900 MG MILLIGRAM EVERY DAYS 2 SEPARATED DOSES
     Route: 048
     Dates: start: 20110928

REACTIONS (2)
  - Metabolic acidosis [Recovered/Resolved]
  - Vomiting [Recovered/Resolved]

NARRATIVE: CASE EVENT DATE: 20190502
